FAERS Safety Report 13738995 (Version 1)
Quarter: 2017Q3

REPORT INFORMATION
  Report Type: Spontaneous
  Country: US (occurrence: US)
  Receive Date: 20170710
  Receipt Date: 20170710
  Transmission Date: 20171127
  Serious: No
  Sender: FDA-Public Use
  Company Number: US-SAOL THERAPEUTICS-2017SAO00242

PATIENT
  Age: 48 Year
  Sex: Male
  Weight: 61.22 kg

DRUGS (10)
  1. BACLOFEN. [Suspect]
     Active Substance: BACLOFEN
     Dosage: 250 ?G, \DAY
     Route: 037
  2. MAGNESIUM [Concomitant]
     Active Substance: MAGNESIUM
     Dosage: 500 MG, \DAY
  3. BACLOFEN. [Suspect]
     Active Substance: BACLOFEN
     Indication: SPINAL CORD INJURY
     Dosage: 299.6 ?G, \DAY
     Route: 037
     Dates: start: 20170123
  4. ASPIRIN. [Concomitant]
     Active Substance: ASPIRIN
  5. ANDROGEL [Concomitant]
     Active Substance: TESTOSTERONE
  6. VITAMIN D3 [Concomitant]
     Active Substance: CHOLECALCIFEROL
     Dosage: 5000 IU, \DAY
  7. BACLOFEN. [Suspect]
     Active Substance: BACLOFEN
     Indication: MUSCLE SPASTICITY
     Dosage: 275 ?G, \DAY
     Route: 037
     Dates: start: 20170106
  8. BACLOFEN. [Suspect]
     Active Substance: BACLOFEN
     Dosage: 324.9 ?G, \DAY
     Route: 037
     Dates: start: 20170130
  9. PREVACID [Concomitant]
     Active Substance: LANSOPRAZOLE
  10. LEVOXYL [Concomitant]
     Active Substance: LEVOTHYROXINE SODIUM
     Dosage: 100 ?G, \DAY

REACTIONS (5)
  - Musculoskeletal stiffness [Unknown]
  - Back pain [Unknown]
  - Muscle rigidity [Unknown]
  - Gait disturbance [Unknown]
  - Muscle spasticity [Unknown]

NARRATIVE: CASE EVENT DATE: 2016
